FAERS Safety Report 18842842 (Version 1)
Quarter: 2021Q1

REPORT INFORMATION
  Report Type: Other
  Country: JP (occurrence: JP)
  Receive Date: 20210203
  Receipt Date: 20210203
  Transmission Date: 20210419
  Serious: Yes (Hospitalization)
  Sender: FDA-Public Use
  Company Number: JP-B.BRAUN MEDICAL INC.-2106292

PATIENT
  Age: 46 Year
  Sex: Male

DRUGS (9)
  1. PARACETAMOL [Concomitant]
     Active Substance: ACETAMINOPHEN
  2. AMPICILLIN/SULBACTAM [Concomitant]
     Active Substance: AMPICILLIN SODIUM\SULBACTAM SODIUM
  3. METRONIDAZOLE INJECTION USP (5 MG/ML) IN PAB? PLASTIC CONTAINER (NDA 0 [Suspect]
     Active Substance: METRONIDAZOLE
     Indication: BRAIN ABSCESS
  4. IMMUNE?GLOBULIN [IMMUNOGLOBULIN] [Concomitant]
  5. PEMBROLIZUMAB. [Concomitant]
     Active Substance: PEMBROLIZUMAB
  6. PREDNISOLONE. [Concomitant]
     Active Substance: PREDNISOLONE
  7. UNSPECIFIED PENICILLIN [Concomitant]
  8. CEFTRIAXONE. [Concomitant]
     Active Substance: CEFTRIAXONE
  9. CORTICOSTEROID PULSE THERAPY [Concomitant]

REACTIONS (1)
  - Toxic epidermal necrolysis [None]
